FAERS Safety Report 13009563 (Version 1)
Quarter: 2016Q4

REPORT INFORMATION
  Report Type: Report from Study
  Country: None (occurrence: BR)
  Receive Date: 20161208
  Receipt Date: 20161208
  Transmission Date: 20170207
  Serious: Yes (Other)
  Sender: FDA-Public Use
  Company Number: BR-ABBVIE-16K-020-1799517-00

PATIENT
  Age: 27 Year
  Sex: Male
  Weight: 130 kg

DRUGS (3)
  1. TRAMAL [Concomitant]
     Active Substance: TRAMADOL
     Dosage: 50 OR 100 MILLIGRAMS A DAY
     Route: 048
     Dates: end: 201604
  2. HUMIRA [Suspect]
     Active Substance: ADALIMUMAB
     Indication: ANKYLOSING SPONDYLITIS
     Route: 058
     Dates: start: 20130325, end: 201602
  3. TRAMAL [Concomitant]
     Active Substance: TRAMADOL
     Indication: PAIN
     Route: 048
     Dates: start: 2011

REACTIONS (9)
  - Arthralgia [Not Recovered/Not Resolved]
  - Antiphospholipid syndrome [Unknown]
  - Factor II deficiency [Recovering/Resolving]
  - Pain [Unknown]
  - Thrombosis [Recovered/Resolved]
  - Mobility decreased [Unknown]
  - Thrombosis [Recovered/Resolved]
  - Back pain [Not Recovered/Not Resolved]
  - Dysstasia [Unknown]

NARRATIVE: CASE EVENT DATE: 201409
